FAERS Safety Report 9789441 (Version 2)
Quarter: 2013Q4

REPORT INFORMATION
  Report Type: Spontaneous
  Country: US (occurrence: US)
  Receive Date: 20131231
  Receipt Date: 20131231
  Transmission Date: 20140711
  Serious: Yes (Other)
  Sender: FDA-Public Use
  Company Number: US-ROCHE-GNE256595

PATIENT
  Age: 81 Year
  Sex: Male

DRUGS (2)
  1. LUCENTIS [Suspect]
     Indication: AGE-RELATED MACULAR DEGENERATION
     Route: 050
  2. SORAFENIB [Concomitant]
     Indication: MACULAR DEGENERATION
     Route: 065

REACTIONS (5)
  - Detachment of retinal pigment epithelium [Unknown]
  - Retinal haemorrhage [Unknown]
  - Visual acuity reduced [Unknown]
  - Retinal degeneration [Unknown]
  - Retinal cyst [Unknown]
